FAERS Safety Report 20540167 (Version 1)
Quarter: 2022Q1

REPORT INFORMATION
  Report Type: Spontaneous
  Country: CN (occurrence: CN)
  Receive Date: 20220302
  Receipt Date: 20220302
  Transmission Date: 20220423
  Serious: Yes (Other)
  Sender: FDA-Public Use
  Company Number: CN-ELI_LILLY_AND_COMPANY-CN202202007811

PATIENT
  Age: 10 Year

DRUGS (1)
  1. STRATTERA [Suspect]
     Active Substance: ATOMOXETINE HYDROCHLORIDE
     Indication: Learning disorder
     Dosage: 0.5 DOSAGE FORM,
     Route: 048
     Dates: start: 20220216

REACTIONS (2)
  - Epilepsy [Unknown]
  - Off label use [Unknown]

NARRATIVE: CASE EVENT DATE: 20220201
